FAERS Safety Report 9284739 (Version 3)
Quarter: 2013Q3

REPORT INFORMATION
  Report Type: Spontaneous
  Country: US (occurrence: US)
  Receive Date: 20130513
  Receipt Date: 20130729
  Transmission Date: 20140515
  Serious: Yes (Hospitalization)
  Sender: FDA-Public Use
  Company Number: US-BIOGENIDEC-2013BI041843

PATIENT
  Age: 31 Year
  Sex: Male

DRUGS (13)
  1. TECFIDERA [Suspect]
     Indication: MULTIPLE SCLEROSIS
     Route: 048
     Dates: start: 20130415, end: 20130421
  2. TECFIDERA [Suspect]
     Indication: MULTIPLE SCLEROSIS
     Route: 048
     Dates: start: 20130422, end: 20130429
  3. NEURONTIN [Concomitant]
     Indication: MULTIPLE SCLEROSIS
     Route: 048
  4. NEURONTIN [Concomitant]
     Indication: MULTIPLE SCLEROSIS
     Route: 061
  5. XANAX [Concomitant]
     Route: 048
  6. ELAVIL [Concomitant]
     Route: 048
  7. SYNTHROID [Concomitant]
  8. LIDOCAINE [Concomitant]
     Route: 061
  9. CARBAMAZEPINE [Concomitant]
  10. HYDROCODONE [Concomitant]
     Route: 048
  11. ACETAMINOPHEN [Concomitant]
     Route: 048
  12. MILNACIPRAN [Concomitant]
  13. TOPIRAMATE [Concomitant]
     Route: 048

REACTIONS (2)
  - Drug reaction with eosinophilia and systemic symptoms [Recovered/Resolved]
  - Bundle branch block right [Unknown]
